FAERS Safety Report 24705732 (Version 1)
Quarter: 2024Q4

REPORT INFORMATION
  Report Type: Spontaneous
  Country: US (occurrence: None)
  Receive Date: 20241205
  Receipt Date: 20241205
  Transmission Date: 20250114
  Serious: Yes (Other)
  Sender: Public
  Company Number: None

PATIENT
  Age: 67 Year
  Sex: Female

DRUGS (19)
  1. INFLECTRA [Suspect]
     Active Substance: INFLIXIMAB-DYYB
     Indication: Prostatic specific antigen increased
     Dosage: EVERY 2 MONTHS INTRAVENOUS ?
     Route: 042
  2. DEVICE [Concomitant]
     Active Substance: DEVICE
  3. DEVICE [Concomitant]
     Active Substance: DEVICE
  4. METHOTREXATE [Concomitant]
     Active Substance: METHOTREXATE
  5. FOLIC ACID [Concomitant]
     Active Substance: FOLIC ACID
  6. EZETIMIBE [Concomitant]
     Active Substance: EZETIMIBE
  7. ALCACTONE (SPIRONOLACTONE) [Concomitant]
  8. SERTRALINE [Concomitant]
     Active Substance: SERTRALINE HYDROCHLORIDE
  9. BISOPROLOL FUM [Concomitant]
  10. IRBESARTAN [Concomitant]
     Active Substance: IRBESARTAN
  11. NITROGLYCERIN [Concomitant]
     Active Substance: NITROGLYCERIN
  12. REPATHA SURE CLICK (EVOLOVUMAB) [Concomitant]
  13. GABAPENTIN [Concomitant]
     Active Substance: GABAPENTIN
  14. ESTRADIOL [Concomitant]
     Active Substance: ESTRADIOL
  15. CLOBETASOL [Concomitant]
     Active Substance: CLOBETASOL
  16. VITAMIN D3 [Concomitant]
     Active Substance: CHOLECALCIFEROL
  17. LANSOPRAZOLE [Concomitant]
     Active Substance: LANSOPRAZOLE
  18. TYLENOL [Concomitant]
     Active Substance: ACETAMINOPHEN
  19. TYLENOL PM [Concomitant]
     Active Substance: ACETAMINOPHEN\DIPHENHYDRAMINE

REACTIONS (2)
  - Restless legs syndrome [None]
  - Disease recurrence [None]
